FAERS Safety Report 6037834-6 (Version None)
Quarter: 2009Q1

REPORT INFORMATION
  Report Type: 
  Country: None (occurrence: None)
  Receive Date: 20090114
  Receipt Date: 20090107
  Transmission Date: 20090719
  Serious: Yes (Life-Threatening, Hospitalization, Other)
  Sender: FDA-Public Use
  Company Number: BR-RANBAXY-2008R5-20362

PATIENT

DRUGS (2)
  1. CEPHALEXIN [Suspect]
     Indication: DERMATITIS ATOPIC
     Dosage: 500 MG, UNK
     Route: 048
     Dates: start: 20081126, end: 20090107
  2. POLARAMINE [Concomitant]

REACTIONS (4)
  - CARDIAC ARREST [None]
  - LOSS OF CONSCIOUSNESS [None]
  - RESPIRATORY ARREST [None]
  - SOMNOLENCE [None]
